FAERS Safety Report 6860425-1 (Version None)
Quarter: 2010Q3

REPORT INFORMATION
  Report Type: 
  Country: None (occurrence: None)
  Receive Date: 20100720
  Receipt Date: 20100712
  Transmission Date: 20110219
  Serious: Yes (Death, Hospitalization)
  Sender: FDA-Public Use
  Company Number: CO-ROCHE-712033

PATIENT
  Sex: Male

DRUGS (2)
  1. AVASTIN [Suspect]
     Indication: COLORECTAL CANCER
     Dosage: FORM REPORTED AS: INFUSION
     Route: 042
     Dates: start: 20100129, end: 20100510
  2. TRAMADOL [Concomitant]
     Indication: PAIN
     Dosage: DOSE REPORTED AS: DROPS, FREQUENCY: AS NECESSARY
     Route: 048

REACTIONS (2)
  - CARDIOPULMONARY FAILURE [None]
  - MALIGNANT NEOPLASM PROGRESSION [None]
